FAERS Safety Report 7420302-4 (Version None)
Quarter: 2011Q2

REPORT INFORMATION
  Report Type: 
  Country: None (occurrence: None)
  Receive Date: 20110418
  Receipt Date: 20110405
  Transmission Date: 20111010
  Serious: Yes (Other)
  Sender: FDA-Public Use
  Company Number: PHHY2011CA28550

PATIENT
  Age: 33 Year
  Sex: Female

DRUGS (6)
  1. RIFAMPIN [Concomitant]
     Dosage: 600 MG, ONCE MONTHLY
  2. PREDNISONE [Concomitant]
     Dosage: 40-80 MG DAILY
  3. THALIDOMIDE [Concomitant]
     Dosage: 100 MG, UNK
  4. OFLOXACIN [Concomitant]
     Dosage: 300 MG, UNK
  5. CLOFAZIMINE [Suspect]
     Indication: TYPE 2 LEPRA REACTION
     Dosage: UNK
  6. DAPSONE [Concomitant]
     Dosage: 100 MG, UNK

REACTIONS (2)
  - EMOTIONAL DISTRESS [None]
  - SKIN HYPERPIGMENTATION [None]
